FAERS Safety Report 5170836-0 (Version None)
Quarter: 2006Q4

REPORT INFORMATION
  Report Type: 
  Country: None (occurrence: None)
  Receive Date: 20061213
  Receipt Date: 20061204
  Transmission Date: 20070319
  Serious: Yes (Other)
  Sender: FDA-Public Use
  Company Number: 2006UW27011

PATIENT
  Sex: Female

DRUGS (4)
  1. SEROQUEL [Suspect]
     Indication: BIPOLAR I DISORDER
     Route: 048
     Dates: start: 20020101
  2. SEROQUEL [Suspect]
     Route: 048
     Dates: start: 19990101, end: 20020101
  3. CLONOPIN [Concomitant]
  4. DEPAKOTE [Concomitant]

REACTIONS (3)
  - BLINDNESS [None]
  - OPTIC NERVE DISORDER [None]
  - OPTIC NEURITIS [None]
